FAERS Safety Report 10257513 (Version 1)
Quarter: 2014Q2

REPORT INFORMATION
  Report Type: Spontaneous
  Country: US (occurrence: US)
  Receive Date: 20140625
  Receipt Date: 20140625
  Transmission Date: 20141212
  Serious: No
  Sender: FDA-Public Use
  Company Number: US-GLAXOSMITHKLINE-A1055996A

PATIENT
  Age: 54 Year
  Sex: Female

DRUGS (2)
  1. VERAMYST [Suspect]
     Indication: SINUS CONGESTION
     Dosage: 2SPR PER DAY
     Route: 045
     Dates: start: 20131229, end: 20140101
  2. MUCINEX [Concomitant]

REACTIONS (2)
  - Headache [Recovered/Resolved]
  - Vomiting [Unknown]
